FAERS Safety Report 7968993-3 (Version None)
Quarter: 2011Q4

REPORT INFORMATION
  Report Type: 
  Country: None (occurrence: None)
  Receive Date: 20111209
  Receipt Date: 20111130
  Transmission Date: 20120403
  Serious: Yes (Other)
  Sender: FDA-Public Use
  Company Number: US-VERTEX PHARMACEUTICALS INC.-AE-2011-004255

PATIENT
  Age: 40 Year
  Sex: Female

DRUGS (3)
  1. INTERFERON [Concomitant]
     Indication: HEPATITIS C
     Dates: start: 20111118, end: 20111126
  2. RIBAVIRIN [Concomitant]
     Indication: HEPATITIS C
     Dates: start: 20111118, end: 20111126
  3. INCIVEK [Suspect]
     Indication: HEPATITIS C
     Route: 048
     Dates: start: 20111118, end: 20111126

REACTIONS (3)
  - ABASIA [None]
  - HALLUCINATION [None]
  - TREMOR [None]
